FAERS Safety Report 17930122 (Version 1)
Quarter: 2020Q2

REPORT INFORMATION
  Report Type: Spontaneous
  Country: US (occurrence: US)
  Receive Date: 20200623
  Receipt Date: 20200623
  Transmission Date: 20200714
  Serious: Yes (Hospitalization)
  Sender: FDA-Public Use
  Company Number: None

PATIENT
  Age: 61 Year
  Sex: Female
  Weight: 69.75 kg

DRUGS (10)
  1. METHOTREXATE. [Concomitant]
     Active Substance: METHOTREXATE
  2. RINVOQ [Concomitant]
     Active Substance: UPADACITINIB
  3. FISH OIL [Suspect]
     Active Substance: FISH OIL
  4. MAGNESIUM [Concomitant]
     Active Substance: MAGNESIUM
  5. NP THYROID [Suspect]
     Active Substance: LEVOTHYROXINE\LIOTHYRONINE
     Indication: HYPOTHYROIDISM
     Dosage: ?          QUANTITY:30 TABLET(S);?
     Route: 048
     Dates: start: 20200510, end: 20200610
  6. MULTIVITAMIN [Concomitant]
     Active Substance: VITAMINS
  7. ELDERBERRY IMMUNE GUMMIES [Concomitant]
  8. VITAMIN D [Concomitant]
     Active Substance: VITAMIN D NOS
  9. CULTURELLE PROBIOTICS [Concomitant]
  10. MELOXICAM. [Concomitant]
     Active Substance: MELOXICAM

REACTIONS (8)
  - Fatigue [None]
  - Dyspnoea [None]
  - Hypertension [None]
  - Weight decreased [None]
  - Heart rate increased [None]
  - Feeling abnormal [None]
  - Decreased appetite [None]
  - Chest pain [None]

NARRATIVE: CASE EVENT DATE: 20200615
